FAERS Safety Report 5721911-0 (Version None)
Quarter: 2008Q2

REPORT INFORMATION
  Report Type: 
  Country: None (occurrence: None)
  Receive Date: 20080429
  Receipt Date: 20080423
  Transmission Date: 20081010
  Serious: Yes (Other)
  Sender: FDA-Public Use
  Company Number: US-PFIZER INC-2008020761

PATIENT
  Sex: Male
  Weight: 136.36 kg

DRUGS (8)
  1. GLUCOTROL [Suspect]
     Indication: TYPE 2 DIABETES MELLITUS
     Dosage: DAILY DOSE:10MG-FREQ:DAILY
     Route: 048
  2. CALAN [Concomitant]
  3. VASOTEC [Concomitant]
  4. PLAVIX [Concomitant]
  5. PROBENECID [Concomitant]
  6. COLCHICINE [Concomitant]
  7. FOLIC ACID [Concomitant]
  8. FUROSEMIDE [Concomitant]

REACTIONS (2)
  - BLOOD GLUCOSE INCREASED [None]
  - PNEUMONIA [None]
